FAERS Safety Report 17037237 (Version 2)
Quarter: 2019Q4

REPORT INFORMATION
  Report Type: Spontaneous
  Country: US (occurrence: US)
  Receive Date: 20191115
  Receipt Date: 20191211
  Transmission Date: 20200122
  Serious: No
  Sender: FDA-Public Use
  Company Number: US-PFIZER INC-2019491252

PATIENT
  Age: 88 Year
  Sex: Female
  Weight: 56.7 kg

DRUGS (1)
  1. ADVIL [Suspect]
     Active Substance: IBUPROFEN
     Dosage: UNK

REACTIONS (5)
  - Arthropathy [Unknown]
  - Product packaging issue [Unknown]
  - Limb injury [Unknown]
  - Skin laceration [Unknown]
  - Malaise [Unknown]
